FAERS Safety Report 6903719-3 (Version None)
Quarter: 2010Q3

REPORT INFORMATION
  Report Type: 
  Country: None (occurrence: None)
  Receive Date: 20100804
  Receipt Date: 20081121
  Transmission Date: 20110219
  Serious: No
  Sender: FDA-Public Use
  Company Number: US-PFIZER INC-2008098994

PATIENT
  Age: 58 Year
  Sex: Female

DRUGS (3)
  1. LYRICA [Suspect]
     Indication: FIBROMYALGIA
  2. TYLENOL W/ CODEINE NO. 3 [Concomitant]
  3. ANTIDEPRESSANTS [Concomitant]

REACTIONS (2)
  - PAIN [None]
  - POLYMYALGIA RHEUMATICA [None]
